FAERS Safety Report 24403181 (Version 1)
Quarter: 2024Q4

REPORT INFORMATION
  Report Type: Report from Study
  Country: IT (occurrence: IT)
  Receive Date: 20241007
  Receipt Date: 20241007
  Transmission Date: 20250114
  Serious: No
  Sender: ROCHE
  Company Number: IT-ROCHE-2460919

PATIENT
  Age: 67 Year
  Sex: Male

DRUGS (1)
  1. OBINUTUZUMAB [Suspect]
     Active Substance: OBINUTUZUMAB
     Indication: Follicular lymphoma
     Dosage: INDUCTION PHASE 1000 MG INTRAVENOUSLY ON DAY 1, 8, 15 OF CYCLE 1 AN DAY 1 OF CYCLES 2-6 OR 2-8, NUMB
     Route: 042
     Dates: start: 20190710

REACTIONS (6)
  - Nasopharyngitis [Recovered/Resolved]
  - Folliculitis [Recovered/Resolved]
  - Toothache [Recovered/Resolved]
  - Cough [Recovered/Resolved]
  - Abdominal pain upper [Not Recovered/Not Resolved]
  - Blood creatinine increased [Recovered/Resolved]

NARRATIVE: CASE EVENT DATE: 20191002
